FAERS Safety Report 22122846 (Version 2)
Quarter: 2023Q1

REPORT INFORMATION
  Report Type: Spontaneous
  Country: US (occurrence: US)
  Receive Date: 20230322
  Receipt Date: 20230327
  Transmission Date: 20230418
  Serious: No
  Sender: FDA-Public Use
  Company Number: US-ALKERMES INC.-ALK-2023-001191

PATIENT
  Age: 36 Year
  Sex: Male

DRUGS (2)
  1. VIVITROL [Suspect]
     Active Substance: NALTREXONE
     Indication: Drug use disorder
     Dosage: 380 MILLIGRAM, QMO
     Route: 030
     Dates: start: 20221027, end: 20221121
  2. NALTREXONE [Suspect]
     Active Substance: NALTREXONE
     Indication: Drug dependence
     Dosage: UNK, QD
     Route: 048
     Dates: start: 20221020

REACTIONS (3)
  - Hallucination [Recovered/Resolved]
  - Paranoia [Recovered/Resolved]
  - Social anxiety disorder [Recovered/Resolved]

NARRATIVE: CASE EVENT DATE: 20221027
